FAERS Safety Report 11347008 (Version 2)
Quarter: 2015Q3

REPORT INFORMATION
  Report Type: Spontaneous
  Country: US (occurrence: US)
  Receive Date: 20150803
  Receipt Date: 20150831
  Transmission Date: 20151125
  Serious: No
  Sender: FDA-Public Use
  Company Number: US-ELI_LILLY_AND_COMPANY-US201103000342

PATIENT
  Age: 32 Year
  Sex: Female

DRUGS (5)
  1. CYMBALTA [Suspect]
     Active Substance: DULOXETINE HYDROCHLORIDE
     Indication: ANXIETY
     Dosage: 60 MG, DAILY (1/D)
     Dates: start: 201010
  2. ZYPREXA [Suspect]
     Active Substance: OLANZAPINE
     Indication: ANXIETY
     Dosage: 5 MG, DAILY (1/D)
     Dates: start: 201010
  3. CYMBALTA [Suspect]
     Active Substance: DULOXETINE HYDROCHLORIDE
     Dosage: 30 MG, DAILY (1/D)
     Dates: start: 20101103, end: 201102
  4. ZYPREXA [Suspect]
     Active Substance: OLANZAPINE
     Dosage: 0.5 D/F, DAILY (1/D)
     Dates: start: 20101103, end: 201102
  5. VITAMIN B12 [Concomitant]
     Active Substance: CYANOCOBALAMIN

REACTIONS (12)
  - Feeling abnormal [Recovered/Resolved]
  - Weight increased [Unknown]
  - Disturbance in attention [Unknown]
  - Off label use [Unknown]
  - Chest pain [Unknown]
  - Depressed mood [Unknown]
  - Cough [Unknown]
  - Anxiety [Unknown]
  - Hyperhidrosis [Unknown]
  - Vomiting [Unknown]
  - Inappropriate schedule of drug administration [Unknown]
  - Wrong technique in product usage process [Unknown]

NARRATIVE: CASE EVENT DATE: 201010
